FAERS Safety Report 17913921 (Version 2)
Quarter: 2020Q3

REPORT INFORMATION
  Report Type: Report from Study
  Country: BR (occurrence: BR)
  Receive Date: 20200618
  Receipt Date: 20200814
  Transmission Date: 20201103
  Serious: Yes (Other)
  Sender: FDA-Public Use
  Company Number: BR-JNJFOC-20191128157

PATIENT
  Age: 65 Year
  Sex: Female
  Weight: 84 kg

DRUGS (9)
  1. REMICADE [Suspect]
     Active Substance: INFLIXIMAB
     Indication: PSORIATIC ARTHROPATHY
     Dosage: 4 VIALS
     Route: 042
     Dates: start: 20121107
  2. LINAGLIPTIN [Concomitant]
     Active Substance: LINAGLIPTIN
  3. ATENOLOL. [Concomitant]
     Active Substance: ATENOLOL
  4. HYDROCHLOROTHIAZIDE. [Concomitant]
     Active Substance: HYDROCHLOROTHIAZIDE
  5. LOSARTAN. [Concomitant]
     Active Substance: LOSARTAN
  6. BIO?MANGUINHOS INFLIXIMABE [Suspect]
     Active Substance: INFLIXIMAB
     Indication: PSORIATIC ARTHROPATHY
     Route: 042
     Dates: start: 20121107
  7. BIO?MANGUINHOS INFLIXIMABE [Suspect]
     Active Substance: INFLIXIMAB
     Route: 042
     Dates: start: 20190612
  8. GLIFAGE [Concomitant]
     Active Substance: METFORMIN HYDROCHLORIDE
  9. ROSUVASTATIN CALCIUM. [Concomitant]
     Active Substance: ROSUVASTATIN CALCIUM

REACTIONS (8)
  - Post procedural haemorrhage [Unknown]
  - Bronchitis [Not Recovered/Not Resolved]
  - Psoriatic arthropathy [Unknown]
  - Influenza [Recovering/Resolving]
  - Sensitive skin [Not Recovered/Not Resolved]
  - Skin mass [Not Recovered/Not Resolved]
  - Endodontic procedure [Unknown]
  - Product dispensing error [Unknown]

NARRATIVE: CASE EVENT DATE: 201907
